FAERS Safety Report 9730331 (Version 2)
Quarter: 2013Q4

REPORT INFORMATION
  Report Type: Spontaneous
  Country: JP (occurrence: JP)
  Receive Date: 20131204
  Receipt Date: 20131204
  Transmission Date: 20140711
  Serious: Yes (Death)
  Sender: FDA-Public Use
  Company Number: JP-ROCHE-1297037

PATIENT
  Age: 73 Year
  Sex: Male
  Weight: 54 kg

DRUGS (3)
  1. AVASTIN [Suspect]
     Indication: GLIOBLASTOMA
     Dosage: DOSAGE IS UNCERTAIN.
     Route: 041
     Dates: start: 20130903, end: 20131006
  2. TEMODAL [Suspect]
     Indication: GLIOBLASTOMA
     Dosage: ROUTE : NASAL CAVITY CATHETER
     Route: 050
     Dates: start: 20130204, end: 20130208
  3. TEMODAL [Suspect]
     Indication: GLIOBLASTOMA
     Dosage: ROUTE : NASAL CAVITY CATHETER
     Route: 050
     Dates: start: 20130304, end: 20130704

REACTIONS (2)
  - Tumour haemorrhage [Fatal]
  - Glioblastoma [Fatal]
